FAERS Safety Report 5911110-1 (Version None)
Quarter: 2008Q4

REPORT INFORMATION
  Report Type: 
  Country: None (occurrence: None)
  Receive Date: 20081007
  Receipt Date: 20080103
  Transmission Date: 20090506
  Serious: No
  Sender: FDA-Public Use
  Company Number: US-BRISTOL-MYERS SQUIBB COMPANY-14029615

PATIENT
  Age: 55 Year
  Sex: Male
  Weight: 75 kg

DRUGS (1)
  1. AVAPRO [Suspect]
     Dosage: DOSE WAS INCREASED TO 300MG DAILY.

REACTIONS (1)
  - DRUG INEFFECTIVE [None]
